FAERS Safety Report 12990779 (Version 1)
Quarter: 2016Q4

REPORT INFORMATION
  Report Type: Spontaneous
  Country: NO (occurrence: NO)
  Receive Date: 20161201
  Receipt Date: 20161201
  Transmission Date: 20170207
  Serious: Yes (Death)
  Sender: FDA-Public Use
  Company Number: NO-JNJFOC-20161126734

PATIENT
  Age: 35 Year
  Sex: Male

DRUGS (5)
  1. LYRICA [Concomitant]
     Active Substance: PREGABALIN
     Route: 065
  2. STELARA [Suspect]
     Active Substance: USTEKINUMAB
     Indication: PSORIASIS
     Route: 058
     Dates: start: 20160125, end: 20160325
  3. STELARA [Suspect]
     Active Substance: USTEKINUMAB
     Indication: PSORIASIS
     Route: 058
     Dates: start: 20160915, end: 20160915
  4. STELARA [Suspect]
     Active Substance: USTEKINUMAB
     Indication: ARTHRALGIA
     Route: 058
     Dates: start: 20160915, end: 20160915
  5. STELARA [Suspect]
     Active Substance: USTEKINUMAB
     Indication: ARTHRALGIA
     Route: 058
     Dates: start: 20160125, end: 20160325

REACTIONS (2)
  - Respiratory arrest [Fatal]
  - Cardiac arrest [Fatal]

NARRATIVE: CASE EVENT DATE: 20160917
